FAERS Safety Report 24207919 (Version 1)
Quarter: 2024Q3

REPORT INFORMATION
  Report Type: Spontaneous
  Country: NL (occurrence: NL)
  Receive Date: 20240814
  Receipt Date: 20240814
  Transmission Date: 20241016
  Serious: Yes (Hospitalization)
  Sender: ABBVIE
  Company Number: None

PATIENT
  Age: 38 Year
  Sex: Female
  Weight: 70 kg

DRUGS (1)
  1. LEVONORGESTREL [Suspect]
     Active Substance: LEVONORGESTREL
     Indication: Contraception
     Dosage: CONTINUE?IUD 52MG / LEVOSERT I.U.D.
     Route: 015
     Dates: start: 20240308, end: 20240508

REACTIONS (5)
  - Abdominal pain [Unknown]
  - Product label confusion [Unknown]
  - Uterine perforation [Recovered/Resolved]
  - Product complaint [Unknown]
  - Device dislocation [Recovered/Resolved]

NARRATIVE: CASE EVENT DATE: 20240101
